FAERS Safety Report 7436840-4 (Version None)
Quarter: 2011Q2

REPORT INFORMATION
  Report Type: 
  Country: None (occurrence: None)
  Receive Date: 20110426
  Receipt Date: 20110422
  Transmission Date: 20111010
  Serious: No
  Sender: FDA-Public Use
  Company Number: US-PFIZER INC-2011063638

PATIENT
  Sex: Female
  Weight: 51.701 kg

DRUGS (3)
  1. ADVIL PM [Suspect]
     Indication: INSOMNIA
     Dosage: 2 TABLETS
     Route: 048
     Dates: start: 20110301
  2. LORAZEPAM [Concomitant]
     Dosage: UNK
     Route: 048
  3. TYLENOL PM [Concomitant]
     Dosage: UNK
     Route: 048

REACTIONS (2)
  - HEART RATE INCREASED [None]
  - HEART RATE IRREGULAR [None]
